FAERS Safety Report 7388138-0 (Version None)
Quarter: 2011Q2

REPORT INFORMATION
  Report Type: 
  Country: None (occurrence: None)
  Receive Date: 20110401
  Receipt Date: 20101011
  Transmission Date: 20111010
  Serious: Yes (Other)
  Sender: FDA-Public Use
  Company Number: US-BAYER-201020636NA

PATIENT
  Sex: Female
  Weight: 56.689 kg

DRUGS (12)
  1. PALGIC D [Concomitant]
     Dosage: 4 MG, UNK
     Dates: end: 20051201
  2. CIPROFLOXACIN [Concomitant]
     Dosage: 500 MG, UNK
     Dates: end: 20071001
  3. AZITHROMYCIN [Concomitant]
     Dosage: 250 MG, UNK
     Dates: end: 20060101
  4. UNCODEABLE ^UNCLASSIFIABLE^ [Concomitant]
  5. AVELOX [Concomitant]
     Dosage: 400 MG, UNK
     Dates: end: 20070801
  6. YAZ [Suspect]
     Indication: PRODUCT USED FOR UNKNOWN INDICATION
     Dosage: UNK UNK, UNK
     Route: 048
     Dates: start: 20080401, end: 20090301
  7. ACETAMINOPHEN W/ CODEINE [Concomitant]
     Dosage: UNK
     Dates: end: 20061201
  8. ZYRTEC [Concomitant]
     Dosage: 10 MG, UNK
     Dates: end: 20071101
  9. BROMPHENIRAMINE [Concomitant]
     Dosage: 6 MG, UNK
     Dates: end: 20070801
  10. NAPROXEN [Concomitant]
  11. AZITHROMYCIN [Concomitant]
     Dosage: 250 MG, UNK
     Dates: end: 20050101
  12. VERAMYST [Concomitant]
     Dosage: UNK
     Dates: end: 20071101

REACTIONS (4)
  - CHOLELITHIASIS [None]
  - CHOLECYSTECTOMY [None]
  - CHOLECYSTITIS CHRONIC [None]
  - GALLBLADDER INJURY [None]
